FAERS Safety Report 20369773 (Version 3)
Quarter: 2022Q1

REPORT INFORMATION
  Report Type: Spontaneous
  Country: AU (occurrence: AU)
  Receive Date: 20220124
  Receipt Date: 20220225
  Transmission Date: 20220423
  Serious: Yes (Hospitalization, Other)
  Sender: FDA-Public Use
  Company Number: AU-JNJFOC-20220128318

PATIENT
  Age: 32 Year
  Sex: Female

DRUGS (2)
  1. ACETAMINOPHEN [Suspect]
     Active Substance: ACETAMINOPHEN
     Indication: Herpes zoster
     Dosage: TOOK 4 DOSAGE FORM EVERY 3 TO 4 HOURS, TOOK 96 DOSAGE FORM OF 665 MILLIGRAM,
     Route: 065
  2. ACETAMINOPHEN [Suspect]
     Active Substance: ACETAMINOPHEN
     Indication: Dysmenorrhoea

REACTIONS (4)
  - Metabolic acidosis [Recovered/Resolved]
  - Pyroglutamic acidosis [Unknown]
  - Drug ineffective [Not Recovered/Not Resolved]
  - Overdose [Unknown]
